FAERS Safety Report 8307591-9 (Version None)
Quarter: 2012Q2

REPORT INFORMATION
  Report Type: 
  Country: None (occurrence: None)
  Receive Date: 20120424
  Receipt Date: 20120411
  Transmission Date: 20120825
  Serious: Yes (Other)
  Sender: FDA-Public Use
  Company Number: US-COVIDIEN/TYCO HEALTHCARE/MALLINCKRODT-T201201454

PATIENT
  Age: 33 Year
  Sex: Female

DRUGS (2)
  1. BUPIVICAINE [Suspect]
     Indication: EPIDURAL ANAESTHESIA
     Dosage: 0.125 %, SINGLE
     Route: 008
  2. FENTANYL CITRATE [Suspect]
     Indication: EPIDURAL ANAESTHESIA
     Dosage: 2 MCG/ML, SINGLE
     Route: 008

REACTIONS (1)
  - HORNER'S SYNDROME [None]
